FAERS Safety Report 7562343-2 (Version None)
Quarter: 2011Q2

REPORT INFORMATION
  Report Type: 
  Country: None (occurrence: None)
  Receive Date: 20110614
  Receipt Date: 20110531
  Transmission Date: 20111010
  Serious: Yes (Other)
  Sender: FDA-Public Use
  Company Number: 2011MA006601

PATIENT
  Age: 25 Year
  Sex: Female

DRUGS (4)
  1. SERTRALINE HYDROCHLORIDE [Suspect]
     Indication: DEPRESSION
  2. ST. JOHN'S WORT [Concomitant]
  3. 3,4-METHYLENEDIOXYMETHAMPHETAMINE [Suspect]
  4. COCAINE [Suspect]

REACTIONS (19)
  - BLOOD POTASSIUM DECREASED [None]
  - DRUG ABUSE [None]
  - MUSCLE RIGIDITY [None]
  - ABDOMINAL PAIN UPPER [None]
  - ASPARTATE AMINOTRANSFERASE INCREASED [None]
  - SEROTONIN SYNDROME [None]
  - DISORIENTATION [None]
  - ALANINE AMINOTRANSFERASE INCREASED [None]
  - BLOOD PRESSURE INCREASED [None]
  - WEIGHT DECREASED [None]
  - OXYGEN SATURATION DECREASED [None]
  - NAUSEA [None]
  - VOMITING [None]
  - ELECTROCARDIOGRAM QT PROLONGED [None]
  - ELECTROCARDIOGRAM NORMAL [None]
  - DECREASED APPETITE [None]
  - HEART RATE INCREASED [None]
  - SINUS TACHYCARDIA [None]
  - AGGRESSION [None]
